FAERS Safety Report 5951783-0 (Version None)
Quarter: 2008Q4

REPORT INFORMATION
  Report Type: 
  Country: None (occurrence: None)
  Receive Date: 20081113
  Receipt Date: 20081110
  Transmission Date: 20090506
  Serious: Yes (Hospitalization, Other)
  Sender: FDA-Public Use
  Company Number: BR-ASTRAZENECA-2008UW25207

PATIENT
  Age: 86 Year
  Sex: Female

DRUGS (2)
  1. SYMBICORT [Suspect]
     Indication: DYSPNOEA
     Dosage: 160/4.5 UG, BID
     Route: 055
     Dates: start: 20080301, end: 20080401
  2. SYMBICORT [Suspect]
     Dosage: 160/4.5 UG, BID
     Route: 055
     Dates: start: 20081001

REACTIONS (11)
  - ABDOMINAL DISTENSION [None]
  - BACK PAIN [None]
  - BLOOD POTASSIUM DECREASED [None]
  - CONSTIPATION [None]
  - COUGH [None]
  - FALL [None]
  - HOT FLUSH [None]
  - INFLUENZA [None]
  - LUNG DISORDER [None]
  - PNEUMONIA [None]
  - THIRST [None]
